FAERS Safety Report 22083472 (Version 3)
Quarter: 2023Q1

REPORT INFORMATION
  Report Type: Report from Study
  Country: IL (occurrence: IL)
  Receive Date: 20230310
  Receipt Date: 20230315
  Transmission Date: 20230417
  Serious: Yes (Hospitalization)
  Sender: FDA-Public Use
  Company Number: IL-ABBVIE-4320003

PATIENT
  Sex: Male

DRUGS (2)
  1. CARBIDOPA\LEVODOPA [Suspect]
     Active Substance: CARBIDOPA\LEVODOPA
     Indication: Parkinson^s disease
     Dosage: THERAPY REMAINS AT 16
     Route: 050
     Dates: start: 20190707
  2. CARBIDOPA\LEVODOPA [Suspect]
     Active Substance: CARBIDOPA\LEVODOPA
     Dosage: MORNING DOSAGE(ML)  3.0, CONTINUOUS DOSAGE (ML/H)  3.3, EXTRA DOSAGE (ML)  1.8
     Route: 050

REACTIONS (2)
  - Kidney infection [Recovered/Resolved]
  - Diarrhoea [Unknown]
